FAERS Safety Report 26047827 (Version 3)
Quarter: 2025Q4

REPORT INFORMATION
  Report Type: Spontaneous
  Country: US (occurrence: US)
  Receive Date: 20251114
  Receipt Date: 20251216
  Transmission Date: 20260118
  Serious: Yes (Life-Threatening, Hospitalization, Other)
  Sender: FRESENIUS KABI
  Company Number: US-FreseniusKabi-FK202515200

PATIENT
  Age: 46 Year
  Sex: Female
  Weight: 65 kg

DRUGS (6)
  1. TOBRAMYCIN [Suspect]
     Active Substance: TOBRAMYCIN
     Indication: Cystic fibrosis
     Dosage: DOSE: UNKNOWN
     Route: 042
     Dates: start: 20251017, end: 20251025
  2. TOBRAMYCIN [Suspect]
     Active Substance: TOBRAMYCIN
     Indication: Cystic fibrosis
     Dosage: INJECTION?EASY PUMP ST?40 MG/ML 30 ML 600 MG
     Dates: start: 20251026, end: 20251031
  3. TOBRAMYCIN [Suspect]
     Active Substance: TOBRAMYCIN
     Dosage: - FIRST DOSE?- 600MG IN NS 100ML INFUSE ENTIRE IV BOTTLE OVER 60 MINUTES 100ML ONCE EVERY 24 HOURS?-
     Route: 042
     Dates: start: 20251027
  4. TOBRAMYCIN [Suspect]
     Active Substance: TOBRAMYCIN
     Dosage: SECOND DOSE
     Dates: start: 20251028
  5. SODIUM CHLORIDE [Suspect]
     Active Substance: SODIUM CHLORIDE
     Indication: Cystic fibrosis
     Dosage: INJECTION?ROA: INTRAVENOUS?ADD 85 MLS TO EACH EASYPUMP ST ?100ML X 100ML/H
     Dates: start: 20251026, end: 20251031
  6. SODIUM CHLORIDE [Suspect]
     Active Substance: SODIUM CHLORIDE
     Indication: Antibiotic therapy

REACTIONS (2)
  - Toxicity to various agents [Recovered/Resolved with Sequelae]
  - Renal failure [Recovered/Resolved with Sequelae]

NARRATIVE: CASE EVENT DATE: 20251029
